FAERS Safety Report 22275524 (Version 1)
Quarter: 2023Q2

REPORT INFORMATION
  Report Type: Spontaneous
  Country: US (occurrence: US)
  Receive Date: 20230502
  Receipt Date: 20230502
  Transmission Date: 20230722
  Serious: No
  Sender: FDA-Public Use
  Company Number: US-PERRIGO-23US003513

PATIENT
  Sex: Female

DRUGS (2)
  1. MICONAZOLE NITRATE [Suspect]
     Active Substance: MICONAZOLE NITRATE
     Indication: Product used for unknown indication
     Dosage: 200 MG, SINGLE
     Route: 067
     Dates: start: 20230313, end: 20230313
  2. MICONAZOLE NITRATE [Suspect]
     Active Substance: MICONAZOLE NITRATE
     Dosage: 200 MG, SINGLE
     Route: 067
     Dates: start: 20230315, end: 20230315

REACTIONS (2)
  - Product dose omission issue [Unknown]
  - Inappropriate schedule of product administration [Unknown]

NARRATIVE: CASE EVENT DATE: 20230314
